FAERS Safety Report 25268665 (Version 2)
Quarter: 2025Q2

REPORT INFORMATION
  Report Type: Spontaneous
  Country: GB (occurrence: GB)
  Receive Date: 20250505
  Receipt Date: 20250604
  Transmission Date: 20250716
  Serious: Yes (Hospitalization, Other)
  Sender: TEVA
  Company Number: GB-ROCHE-10000267081

PATIENT
  Age: 71 Year
  Sex: Female

DRUGS (5)
  1. DOXORUBICIN [Suspect]
     Active Substance: DOXORUBICIN
     Indication: Diffuse large B-cell lymphoma stage IV
     Route: 065
     Dates: end: 202003
  2. CYCLOPHOSPHAMIDE [Suspect]
     Active Substance: CYCLOPHOSPHAMIDE
     Indication: Diffuse large B-cell lymphoma stage IV
     Route: 065
     Dates: end: 202003
  3. RITUXIMAB [Suspect]
     Active Substance: RITUXIMAB
     Indication: Diffuse large B-cell lymphoma stage IV
     Route: 065
     Dates: end: 202003
  4. PREDNISONE [Suspect]
     Active Substance: PREDNISONE
     Indication: Diffuse large B-cell lymphoma stage IV
     Route: 065
     Dates: end: 202003
  5. VINCRISTINE [Suspect]
     Active Substance: VINCRISTINE
     Indication: Diffuse large B-cell lymphoma stage IV
     Route: 065
     Dates: end: 202003

REACTIONS (9)
  - Abdominal pain [Unknown]
  - Thyroiditis [Unknown]
  - Lymphadenopathy [Unknown]
  - Mental disorder [Unknown]
  - Gastrointestinal disorder [Unknown]
  - Colitis [Unknown]
  - Diffuse large B-cell lymphoma recurrent [Unknown]
  - Mucosal inflammation [Unknown]
  - Diarrhoea [Unknown]

NARRATIVE: CASE EVENT DATE: 20210701
